FAERS Safety Report 6616102-5 (Version None)
Quarter: 2010Q1

REPORT INFORMATION
  Report Type: 
  Country: None (occurrence: None)
  Receive Date: 20100305
  Receipt Date: 20100301
  Transmission Date: 20100710
  Serious: Yes (Hospitalization)
  Sender: FDA-Public Use
  Company Number: BR-MERCK-1003BRA00008

PATIENT
  Age: 27 Month
  Sex: Male
  Weight: 13 kg

DRUGS (1)
  1. SINGULAIR [Suspect]
     Indication: RHINITIS ALLERGIC
     Route: 048
     Dates: start: 20091212, end: 20100220

REACTIONS (1)
  - IDIOPATHIC THROMBOCYTOPENIC PURPURA [None]
